FAERS Safety Report 4975415-3 (Version None)
Quarter: 2006Q2

REPORT INFORMATION
  Report Type: 
  Country: None (occurrence: None)
  Receive Date: 20060411
  Receipt Date: 20060404
  Transmission Date: 20061013
  Serious: Yes (Death, Hospitalization)
  Sender: FDA-Public Use
  Company Number: 2005059205

PATIENT
  Age: 52 Year
  Sex: Male
  Weight: 118 kg

DRUGS (13)
  1. SUTENT [Suspect]
     Indication: RENAL CELL CARCINOMA STAGE UNSPECIFIED
     Dosage: 50 MG (50 MG, DAILY FOR 4 WEEKS, 2 WEEKS OFF), ORAL
     Route: 048
     Dates: start: 20041222
  2. MAXERAN             (METOCLOPRAMIDE HYDROCHLORIDE) [Concomitant]
  3. DILAUDID [Concomitant]
  4. DECADRON [Concomitant]
  5. ATACAND [Concomitant]
  6. LOPRESSOR [Concomitant]
  7. RESTORIL [Concomitant]
  8. PREVACID [Concomitant]
  9. VOLTAREN [Concomitant]
  10. COLACE (DOCUSATE SODIUM) [Concomitant]
  11. SENOKOT [Concomitant]
  12. STEMETIL SUPPOSITORY (PROCHLORPERAZINE) [Concomitant]
  13. GRAVOL TAB [Concomitant]

REACTIONS (7)
  - ACTIVITIES OF DAILY LIVING IMPAIRED [None]
  - ASTHENIA [None]
  - DIFFICULTY IN WALKING [None]
  - DISEASE PROGRESSION [None]
  - PAIN [None]
  - RENAL FAILURE ACUTE [None]
  - SPINAL CORD COMPRESSION [None]
